FAERS Safety Report 25984260 (Version 1)
Quarter: 2025Q4

REPORT INFORMATION
  Report Type: Spontaneous
  Country: US (occurrence: US)
  Receive Date: 20251031
  Receipt Date: 20251031
  Transmission Date: 20260118
  Serious: No
  Sender: PFIZER
  Company Number: US-PFIZER INC-PV202500037436

PATIENT
  Age: 41 Year
  Sex: Female

DRUGS (2)
  1. NURTEC ODT [Suspect]
     Active Substance: RIMEGEPANT SULFATE
     Indication: Migraine with aura
     Dosage: 75 MG, AS NEEDED
     Route: 048
  2. SUCRALOSE [Suspect]
     Active Substance: SUCRALOSE
     Dosage: UNK
     Route: 048

REACTIONS (2)
  - Reaction to excipient [Recovered/Resolved]
  - Migraine [Recovered/Resolved]
